FAERS Safety Report 23457652 (Version 3)
Quarter: 2024Q1

REPORT INFORMATION
  Report Type: Spontaneous
  Country: US (occurrence: US)
  Receive Date: 20240130
  Receipt Date: 20240325
  Transmission Date: 20240410
  Serious: Yes (Other)
  Sender: FDA-Public Use
  Company Number: US-ABBVIE-5597903

PATIENT
  Sex: Female
  Weight: 75 kg

DRUGS (1)
  1. LILETTA [Suspect]
     Active Substance: LEVONORGESTREL
     Indication: Product used for unknown indication
     Dosage: TIME INTERVAL: AS NECESSARY: FROM STRENGTH: 52MG
     Route: 015
     Dates: start: 20231024, end: 202311

REACTIONS (2)
  - Uterine perforation [Unknown]
  - Device dislocation [Unknown]

NARRATIVE: CASE EVENT DATE: 20230101
